FAERS Safety Report 6437086-9 (Version None)
Quarter: 2009Q4

REPORT INFORMATION
  Report Type: 
  Country: None (occurrence: None)
  Receive Date: 20091112
  Receipt Date: 20091028
  Transmission Date: 20100525
  Serious: Yes (Other)
  Sender: FDA-Public Use
  Company Number: PHHY2009NL48181

PATIENT
  Age: 53 Year
  Sex: Female

DRUGS (2)
  1. CARBAMAZEPINE [Suspect]
     Indication: TRIGEMINAL NEURALGIA
     Dosage: 400 MG, BID
  2. AMITRIPTYLINE [Suspect]
     Indication: TRIGEMINAL NEURALGIA
     Dosage: 10 MG, QD

REACTIONS (7)
  - ADRENAL INSUFFICIENCY [None]
  - DISTURBANCE IN ATTENTION [None]
  - GAIT DISTURBANCE [None]
  - HYPONATRAEMIA [None]
  - INAPPROPRIATE ANTIDIURETIC HORMONE SECRETION [None]
  - MEMORY IMPAIRMENT [None]
  - NAUSEA [None]
